FAERS Safety Report 5036425-3 (Version None)
Quarter: 2006Q2

REPORT INFORMATION
  Report Type: 
  Country: None (occurrence: None)
  Receive Date: 20060628
  Receipt Date: 20060529
  Transmission Date: 20061013
  Serious: Yes (Other)
  Sender: FDA-Public Use
  Company Number: AU-NOVOPROD-253680

PATIENT
  Age: 0 None
  Sex: Male

DRUGS (2)
  1. NORDITROPIN SIMPLEXX [Suspect]
     Indication: PRADER-WILLI SYNDROME
     Dosage: 1000 UG, QD
  2. NORDITROPIN SIMPLEXX [Suspect]
     Dosage: 1630 UG, QD

REACTIONS (4)
  - CONDITION AGGRAVATED [None]
  - DISEASE RECURRENCE [None]
  - KYPHOSCOLIOSIS [None]
  - SLEEP APNOEA SYNDROME [None]
